FAERS Safety Report 7626423-5 (Version None)
Quarter: 2011Q3

REPORT INFORMATION
  Report Type: 
  Country: None (occurrence: None)
  Receive Date: 20110721
  Receipt Date: 20110711
  Transmission Date: 20111222
  Serious: Yes (Hospitalization, Other)
  Sender: FDA-Public Use
  Company Number: US-ROCHE-621408

PATIENT
  Sex: Male
  Weight: 77.1 kg

DRUGS (4)
  1. ACCUTANE [Suspect]
     Route: 065
     Dates: start: 19821229, end: 19830324
  2. ACCUTANE [Suspect]
     Route: 065
     Dates: start: 19821217
  3. TRIAM [Concomitant]
  4. MINOCIN [Concomitant]
     Dates: start: 19820923

REACTIONS (10)
  - COLITIS ULCERATIVE [None]
  - BLOOD CHOLESTEROL DECREASED [None]
  - BLOOD TRIGLYCERIDES INCREASED [None]
  - ENTEROCUTANEOUS FISTULA [None]
  - SMALL INTESTINAL OBSTRUCTION [None]
  - INFLAMMATORY BOWEL DISEASE [None]
  - PROCTITIS [None]
  - CROHN'S DISEASE [None]
  - PYODERMA GANGRENOSUM [None]
  - HAEMATOCRIT DECREASED [None]
